FAERS Safety Report 13687124 (Version 3)
Quarter: 2020Q3

REPORT INFORMATION
  Report Type: Report from Study
  Country: IE (occurrence: IE)
  Receive Date: 20170623
  Receipt Date: 20181002
  Transmission Date: 20201104
  Serious: Yes (Hospitalization)
  Sender: FDA-Public Use
  Company Number: IE-JNJFOC-20170615307

PATIENT
  Age: 71 Year
  Sex: Female
  Weight: 62 kg

DRUGS (15)
  1. ANXICAM [Concomitant]
     Indication: HYPERTENSION
     Route: 048
     Dates: start: 20150301
  2. CALCICHEW D3 FORTE [Concomitant]
     Active Substance: CALCIUM\CHOLECALCIFEROL
     Indication: MINERAL SUPPLEMENTATION
     Route: 048
     Dates: start: 20160313
  3. LENALIDOMIDE [Suspect]
     Active Substance: LENALIDOMIDE
     Indication: PLASMA CELL MYELOMA
     Dosage: D1?D21
     Route: 048
     Dates: start: 20160428, end: 20170614
  4. VALTREX [Concomitant]
     Active Substance: VALACYCLOVIR HYDROCHLORIDE
     Indication: PROPHYLACTIC CHEMOTHERAPY
     Route: 048
     Dates: start: 20160428
  5. ZOMETA [Concomitant]
     Active Substance: ZOLEDRONIC ACID
     Indication: MINERAL SUPPLEMENTATION
     Route: 042
     Dates: start: 20160312
  6. ESOMEPRAZOLE. [Concomitant]
     Active Substance: ESOMEPRAZOLE MAGNESIUM
     Indication: GASTROOESOPHAGEAL REFLUX PROPHYLAXIS
     Route: 048
     Dates: start: 20160901
  7. ASPIRIN. [Concomitant]
     Active Substance: ASPIRIN
     Indication: PROPHYLACTIC CHEMOTHERAPY
     Route: 048
     Dates: start: 20160428, end: 20170614
  8. MOVICOL [Concomitant]
     Active Substance: POLYETHYLENE GLYCOL 3350\POTASSIUM CHLORIDE\SODIUM BICARBONATE\SODIUM CHLORIDE
     Indication: PROPHYLAXIS
     Route: 048
     Dates: start: 20160901
  9. DARATUMUMAB [Suspect]
     Active Substance: DARATUMUMAB
     Indication: PLASMA CELL MYELOMA
     Dosage: DAY 1 OF 28 CYCLE
     Route: 042
     Dates: start: 20160428, end: 20170525
  10. DEXAMETHASONE. [Suspect]
     Active Substance: DEXAMETHASONE
     Indication: PLASMA CELL MYELOMA
     Dosage: D1 D8 D15 D22
     Route: 048
     Dates: start: 20160428, end: 20170608
  11. LERCANIDIPINE [Concomitant]
     Active Substance: LERCANIDIPINE
     Indication: HYPERTENSION
     Route: 048
     Dates: start: 20140501
  12. NEXIUM [Concomitant]
     Active Substance: ESOMEPRAZOLE MAGNESIUM
     Indication: PROPHYLACTIC CHEMOTHERAPY
     Route: 048
     Dates: start: 20160428
  13. TRAMADOL. [Concomitant]
     Active Substance: TRAMADOL
     Indication: PROPHYLACTIC CHEMOTHERAPY
     Route: 048
     Dates: start: 20160901
  14. DARATUMUMAB [Suspect]
     Active Substance: DARATUMUMAB
     Route: 042
  15. CYCLIZINE [Concomitant]
     Active Substance: CYCLIZINE
     Indication: PROPHYLACTIC CHEMOTHERAPY
     Route: 048
     Dates: start: 20160901

REACTIONS (1)
  - Lower respiratory tract infection [Recovered/Resolved]

NARRATIVE: CASE EVENT DATE: 20170613
